FAERS Safety Report 7624535-3 (Version None)
Quarter: 2011Q3

REPORT INFORMATION
  Report Type: 
  Country: None (occurrence: None)
  Receive Date: 20110720
  Receipt Date: 20110714
  Transmission Date: 20111222
  Serious: Yes (Death)
  Sender: FDA-Public Use
  Company Number: US-ASTRAZENECA-2011SE42478

PATIENT
  Age: 19456 Day
  Sex: Male

DRUGS (1)
  1. SEROQUEL [Suspect]
     Dosage: 100 MG 1 TO 2 TABLETS AT NIGHT
     Route: 048

REACTIONS (1)
  - MYOCARDIAL INFARCTION [None]
